FAERS Safety Report 6686735-9 (Version None)
Quarter: 2010Q2

REPORT INFORMATION
  Report Type: 
  Country: None (occurrence: None)
  Receive Date: 20100419
  Receipt Date: 20100413
  Transmission Date: 20101027
  Serious: Yes (Hospitalization)
  Sender: FDA-Public Use
  Company Number: CG-MERCK-1004USA02148

PATIENT
  Age: 46 Year
  Sex: Male

DRUGS (1)
  1. STROMECTOL [Suspect]
     Route: 048
     Dates: start: 20100125, end: 20100125

REACTIONS (11)
  - BLOOD PRESSURE INCREASED [None]
  - COMA [None]
  - CONJUNCTIVAL HAEMORRHAGE [None]
  - DEPRESSED LEVEL OF CONSCIOUSNESS [None]
  - ENCEPHALOPATHY [None]
  - FAECAL INCONTINENCE [None]
  - HEADACHE [None]
  - HEART RATE INCREASED [None]
  - MALARIA [None]
  - PSYCHOMOTOR HYPERACTIVITY [None]
  - VERTIGO [None]
